FAERS Safety Report 19283524 (Version 1)
Quarter: 2021Q2

REPORT INFORMATION
  Report Type: Spontaneous
  Country: US (occurrence: US)
  Receive Date: 20210520
  Receipt Date: 20210520
  Transmission Date: 20210717
  Serious: No
  Sender: FDA-Public Use
  Company Number: US-ASTRAZENECA-2021A354000

PATIENT
  Age: 74 Year
  Sex: Male

DRUGS (2)
  1. BYDUREON [Suspect]
     Active Substance: EXENATIDE
     Dosage: SINCE 8 TO 10 YEARS AGO
     Route: 058
  2. BYDUREON BCISE [Concomitant]
     Active Substance: EXENATIDE

REACTIONS (3)
  - Cardiac disorder [Not Recovered/Not Resolved]
  - Anxiety [Unknown]
  - Diabetes mellitus [Not Recovered/Not Resolved]

NARRATIVE: CASE EVENT DATE: 2021
